FAERS Safety Report 16705896 (Version 3)
Quarter: 2019Q3

REPORT INFORMATION
  Report Type: Spontaneous
  Country: EG (occurrence: EG)
  Receive Date: 20190815
  Receipt Date: 20190919
  Transmission Date: 20191004
  Serious: Yes (Other)
  Sender: FDA-Public Use
  Company Number: EG-JNJFOC-20190807565

PATIENT
  Age: 35 Year
  Sex: Male

DRUGS (1)
  1. GUSELKUMAB [Suspect]
     Active Substance: GUSELKUMAB
     Indication: PSORIASIS
     Dosage: 2ND DOSE WAS ADMINISTERED ON 1/JUN/2019
     Route: 065
     Dates: start: 20190501, end: 20190601

REACTIONS (3)
  - Drug ineffective [Not Recovered/Not Resolved]
  - Neuropathy peripheral [Recovering/Resolving]
  - Skin lesion [Not Recovered/Not Resolved]
